APPROVED DRUG PRODUCT: ALPROSTADIL
Active Ingredient: ALPROSTADIL
Strength: 0.5MG/ML
Dosage Form/Route: INJECTABLE;INJECTION
Application: A075196 | Product #001 | TE Code: AP
Applicant: MEITHEAL PHARMACEUTICALS INC
Approved: Apr 30, 1999 | RLD: No | RS: No | Type: RX